FAERS Safety Report 5369540-5 (Version None)
Quarter: 2007Q2

REPORT INFORMATION
  Report Type: 
  Country: None (occurrence: None)
  Receive Date: 20070625
  Receipt Date: 20070615
  Transmission Date: 20071010
  Serious: Yes (Hospitalization)
  Sender: FDA-Public Use
  Company Number: B0475929A

PATIENT
  Age: 79 Year
  Sex: Female
  Weight: 50 kg

DRUGS (8)
  1. PAROXETINE HCL [Suspect]
     Indication: DRUG USE FOR UNKNOWN INDICATION
     Dosage: 20MG PER DAY
     Route: 048
     Dates: start: 20070504, end: 20070513
  2. LOZOL [Concomitant]
     Dosage: 10MG PER DAY
     Route: 048
     Dates: end: 20070513
  3. ALDACTONE [Concomitant]
     Dosage: 50MG PER DAY
     Route: 048
     Dates: start: 20070504, end: 20070513
  4. BEFIZAL [Concomitant]
     Dosage: 400MG PER DAY
     Dates: end: 20070513
  5. ALPRAZOLAM [Concomitant]
     Dosage: .5UNIT PER DAY
     Dates: end: 20070513
  6. ACETAMINOPHEN [Concomitant]
     Dates: end: 20070513
  7. SYMPAVAGOL [Concomitant]
     Dosage: 3UNIT PER DAY
     Dates: end: 20070513
  8. CYCLO 3 FORT [Concomitant]
     Dosage: 2UNIT PER DAY
     Dates: end: 20070513

REACTIONS (6)
  - DISORIENTATION [None]
  - GAIT DISTURBANCE [None]
  - HYPONATRAEMIA [None]
  - INCOHERENT [None]
  - LOSS OF CONSCIOUSNESS [None]
  - MALAISE [None]
